FAERS Safety Report 17375561 (Version 2)
Quarter: 2020Q1

REPORT INFORMATION
  Report Type: Spontaneous
  Country: FI (occurrence: FI)
  Receive Date: 20200206
  Receipt Date: 20200214
  Transmission Date: 20200409
  Serious: Yes (Hospitalization)
  Sender: FDA-Public Use
  Company Number: FI-TEVA-2020-FI-1182006

PATIENT
  Age: 42 Year
  Sex: Female

DRUGS (19)
  1. MIRTAZAPIN ORION [Concomitant]
     Active Substance: MIRTAZAPINE
     Dosage: 7.5,MG,DAILY
     Route: 048
  2. BURANA [Concomitant]
     Active Substance: IBUPROFEN
     Indication: BACK PAIN
     Dosage: AS NECESSARY
     Route: 048
  3. SIRDALUD [Concomitant]
     Active Substance: TIZANIDINE
     Dosage: AS NECESSARY
     Route: 048
  4. ESOMEPRAZOL ORION [Concomitant]
     Active Substance: ESOMEPRAZOLE MAGNESIUM
     Dosage: 20,MG,DAILY
     Route: 048
  5. TRADOLAN RETARD [Concomitant]
     Active Substance: TRAMADOL HYDROCHLORIDE
     Dosage: AS NECESSARY
     Route: 048
  6. PARAMAX FORTE [Concomitant]
     Indication: PAIN
     Dosage: AS NECESSARY
     Route: 048
  7. OFTAGEL [Concomitant]
     Active Substance: CARBOMER
     Dosage: 4 GTT DAILY; 4,GTT,DAILY
     Route: 047
  8. ARCOXIA [Concomitant]
     Active Substance: ETORICOXIB
     Dosage: 90 MILLIGRAM DAILY; 90,MG,DAILY
     Route: 048
  9. AMLODIPINE [Suspect]
     Active Substance: AMLODIPINE BESYLATE
     Indication: HYPERTENSION
     Dosage: 5,MG,DAILY
     Route: 048
     Dates: start: 20190701, end: 20191211
  10. RELERT [Concomitant]
     Active Substance: ELETRIPTAN HYDROBROMIDE
     Indication: MIGRAINE
     Dosage: AS NECESSARY
     Route: 048
  11. PRIMPERAN [Concomitant]
     Active Substance: METOCLOPRAMIDE HYDROCHLORIDE
     Indication: MIGRAINE
     Dosage: AS NECESSARY
     Route: 048
  12. FURESIS [Concomitant]
     Active Substance: FUROSEMIDE
     Indication: OEDEMA
     Dosage: AS NECESSARY
     Route: 048
     Dates: end: 20191222
  13. OXYRATIO [Concomitant]
     Dosage: AS NECESSARY
     Route: 048
     Dates: end: 20191222
  14. MELATONIN ORION [Concomitant]
     Active Substance: MELATONIN
     Dosage: 2,MG,DAILY
     Route: 048
  15. CETIRIZIN-RATIOPHARM [Concomitant]
     Indication: PRURITUS
     Dosage: AS NECESSARY
     Route: 048
  16. APURIN SANDOZ [Concomitant]
     Active Substance: ALLOPURINOL
     Dosage: 300 MILLIGRAM DAILY; 300,MG,DAILY
     Route: 048
  17. KETIPINOR [Concomitant]
     Active Substance: QUETIAPINE FUMARATE
     Dosage: AS NECESSARY
     Route: 048
  18. ATACAND [Concomitant]
     Active Substance: CANDESARTAN CILEXETIL
     Dosage: 32,MG,DAILY
     Route: 048
  19. SOFTACORT [Concomitant]
     Active Substance: HYDROCORTISONE SODIUM PHOSPHATE
     Dosage: 3 GTT DAILY; 3,GTT,DAILY
     Route: 047

REACTIONS (2)
  - Pain in extremity [Unknown]
  - Oedema [Unknown]

NARRATIVE: CASE EVENT DATE: 20191211
